FAERS Safety Report 4750327-9 (Version None)
Quarter: 2005Q3

REPORT INFORMATION
  Report Type: 
  Country: None (occurrence: None)
  Receive Date: 20050818
  Receipt Date: 20050808
  Transmission Date: 20060218
  Serious: Yes (Hospitalization, Other)
  Sender: FDA-Public Use
  Company Number: 2005113075

PATIENT
  Age: 68 Year
  Sex: Female
  Weight: 102 kg

DRUGS (2)
  1. AMLODIPINE [Suspect]
     Indication: BLOOD PRESSURE INCREASED
     Dosage: (5MG) ORAL
     Route: 048
     Dates: start: 20050711, end: 20050718
  2. LISINOPRIL [Concomitant]

REACTIONS (4)
  - BLISTER [None]
  - ERYTHEMA [None]
  - OEDEMA PERIPHERAL [None]
  - PHOTOSENSITIVITY REACTION [None]
